FAERS Safety Report 15583565 (Version 1)
Quarter: 2018Q4

REPORT INFORMATION
  Report Type: Spontaneous
  Country: US (occurrence: US)
  Receive Date: 20181031
  Receipt Date: 20181031
  Transmission Date: 20190205
  Serious: Yes (Hospitalization)
  Sender: FDA-Public Use
  Company Number: None

PATIENT
  Age: 31 Year
  Sex: Male
  Weight: 79 kg

DRUGS (1)
  1. BUPROPION. [Suspect]
     Active Substance: BUPROPION
     Dates: start: 20180412, end: 20180722

REACTIONS (5)
  - Seizure [None]
  - Head injury [None]
  - Fall [None]
  - Confusional state [None]
  - Blood lactic acid increased [None]

NARRATIVE: CASE EVENT DATE: 20180721
